FAERS Safety Report 7393086-6 (Version None)
Quarter: 2011Q2

REPORT INFORMATION
  Report Type: 
  Country: None (occurrence: None)
  Receive Date: 20110404
  Receipt Date: 20110331
  Transmission Date: 20111010
  Serious: Yes (Life-Threatening)
  Sender: FDA-Public Use
  Company Number: GB-ABBOTT-11P-167-0715906-00

PATIENT
  Age: 82 Year
  Sex: Female
  Weight: 90 kg

DRUGS (5)
  1. KLARICID [Suspect]
     Indication: BRONCHIECTASIS
     Route: 048
     Dates: start: 20110321, end: 20110322
  2. AMPICILLIN SODIUM/SULBACTAM SODIUM [Concomitant]
     Indication: PRODUCT USED FOR UNKNOWN INDICATION
  3. GLICLAZIDE [Concomitant]
     Indication: PRODUCT USED FOR UNKNOWN INDICATION
  4. INSULIN GLARGINE [Concomitant]
     Indication: PRODUCT USED FOR UNKNOWN INDICATION
  5. METFORMIN [Concomitant]
     Indication: PRODUCT USED FOR UNKNOWN INDICATION

REACTIONS (1)
  - HYPOGLYCAEMIA [None]
